FAERS Safety Report 7820415-9 (Version None)
Quarter: 2011Q4

REPORT INFORMATION
  Report Type: 
  Country: None (occurrence: None)
  Receive Date: 20111018
  Receipt Date: 20110922
  Transmission Date: 20120403
  Serious: No
  Sender: FDA-Public Use
  Company Number: US-ROXANE LABORATORIES, INC.-2011-RO-01168RO

PATIENT
  Sex: Female

DRUGS (3)
  1. BIRTH CONTROL PILL [Concomitant]
     Indication: CONTRACEPTION
  2. ANXIETY MEDICATION [Concomitant]
     Indication: ANXIETY
  3. FLUTICASONE PROPIONATE [Suspect]
     Indication: SINUSITIS
     Route: 055
     Dates: start: 20110729, end: 20110729

REACTIONS (2)
  - DRUG INEFFECTIVE [None]
  - EPISTAXIS [None]
